FAERS Safety Report 6447077-X (Version None)
Quarter: 2009Q4

REPORT INFORMATION
  Report Type: 
  Country: None (occurrence: None)
  Receive Date: 20091119
  Receipt Date: 20091109
  Transmission Date: 20100525
  Serious: Yes (Death, Hospitalization, Other)
  Sender: FDA-Public Use
  Company Number: US-BAXTER-2009BH014775

PATIENT
  Sex: Female

DRUGS (3)
  1. DIANEAL [Suspect]
     Indication: PERITONEAL DIALYSIS
     Route: 033
     Dates: end: 20090101
  2. DIANEAL [Suspect]
     Indication: PERITONEAL DIALYSIS
     Route: 033
     Dates: end: 20090101
  3. EXTRANEAL [Suspect]
     Indication: PERITONEAL DIALYSIS
     Route: 033
     Dates: end: 20090101

REACTIONS (4)
  - DEATH [None]
  - FAT EMBOLISM [None]
  - POSTOPERATIVE WOUND INFECTION [None]
  - SEPSIS [None]
